FAERS Safety Report 18361938 (Version 2)
Quarter: 2020Q4

REPORT INFORMATION
  Report Type: Report from Study
  Country: CN (occurrence: CN)
  Receive Date: 20201008
  Receipt Date: 20201231
  Transmission Date: 20210114
  Serious: Yes (Death, Hospitalization, Other)
  Sender: FDA-Public Use
  Company Number: CN-BRISTOL-MYERS SQUIBB COMPANY-BMS-2020-056706

PATIENT
  Age: 76 Year
  Sex: Male

DRUGS (1)
  1. NIVOLUMAB [Suspect]
     Active Substance: NIVOLUMAB
     Indication: NON-SMALL CELL LUNG CANCER
     Dosage: 180 MILLIGRAM, Q2WK
     Route: 042
     Dates: start: 20181128, end: 202008

REACTIONS (7)
  - Malignant neoplasm progression [Fatal]
  - Occult blood [Unknown]
  - Anaemia [Unknown]
  - Leukaemia [Unknown]
  - White blood cell count increased [Unknown]
  - Renal impairment [Unknown]
  - Pyrexia [Unknown]

NARRATIVE: CASE EVENT DATE: 2019
